FAERS Safety Report 9719925 (Version 1)
Quarter: 2013Q4

REPORT INFORMATION
  Report Type: Spontaneous
  Country: US (occurrence: US)
  Receive Date: 20131128
  Receipt Date: 20131128
  Transmission Date: 20140711
  Serious: Yes (Other)
  Sender: FDA-Public Use
  Company Number: US-JNJFOC-20131115858

PATIENT
  Sex: Male
  Weight: 78.02 kg

DRUGS (7)
  1. XARELTO [Suspect]
     Indication: CEREBROVASCULAR ACCIDENT PROPHYLAXIS
     Route: 048
     Dates: start: 20131023
  2. XARELTO [Suspect]
     Indication: ATRIAL FIBRILLATION
     Route: 048
     Dates: start: 20131023
  3. MIRTAZAPINE [Suspect]
     Indication: ANXIETY
     Dosage: AT BED TIME
     Route: 048
     Dates: start: 20131112
  4. LORAZEPAM [Suspect]
     Indication: PRODUCT USED FOR UNKNOWN INDICATION
     Route: 048
     Dates: start: 20131023
  5. ATORVASTATIN CALCIUM [Concomitant]
     Route: 048
     Dates: start: 20131023
  6. METOPROLOL TARTRATE [Concomitant]
     Dosage: HALF TABLET
     Route: 048
     Dates: start: 20131023
  7. POLYETHYLENE GLYCOL [Concomitant]
     Dosage: 1 PACKET/ POWDER FOR RECONSTITUTION
     Route: 048
     Dates: start: 20130520

REACTIONS (7)
  - Hepatitis cholestatic [Recovered/Resolved]
  - Failure to thrive [Unknown]
  - Jaundice [Recovered/Resolved]
  - Anaemia [Unknown]
  - Malaise [Unknown]
  - Cholelithiasis [Unknown]
  - Aggression [Unknown]
